FAERS Safety Report 21506149 (Version 2)
Quarter: 2022Q4

REPORT INFORMATION
  Report Type: Report from Study
  Country: EG (occurrence: EG)
  Receive Date: 20221026
  Receipt Date: 20221105
  Transmission Date: 20230113
  Serious: Yes (Other)
  Sender: FDA-Public Use
  Company Number: EG-NOVARTISPH-NVSC2022EG238838

PATIENT
  Age: 11 Year
  Sex: Female

DRUGS (3)
  1. OMNITROPE [Suspect]
     Active Substance: SOMATROPIN
     Indication: Growth hormone deficiency
     Dosage: 0.7 MG, QD
     Route: 058
     Dates: start: 20221012, end: 20221018
  2. VIDROP [Concomitant]
     Indication: Supplementation therapy
     Dosage: UNK, 1 DROPPER, QD (2 OR 3 DAYS BEFORE  STARTING OMNITROPE)
     Route: 048
  3. FEROGLOBIN [Concomitant]
     Indication: Supplementation therapy
     Dosage: 5 CM, QD (2 OR 3 DAYS BEFORE  STARTING OMNITROPE)
     Route: 048

REACTIONS (7)
  - Neuralgia [Recovered/Resolved]
  - Arthralgia [Recovered/Resolved]
  - Eye pain [Recovered/Resolved]
  - Pain [Recovered/Resolved]
  - Pain of skin [Recovered/Resolved]
  - Back pain [Recovered/Resolved]
  - Pruritus [Recovered/Resolved]

NARRATIVE: CASE EVENT DATE: 20221013
